FAERS Safety Report 7300731-X (Version None)
Quarter: 2011Q1

REPORT INFORMATION
  Report Type: 
  Country: None (occurrence: None)
  Receive Date: 20110105
  Receipt Date: 20100701
  Transmission Date: 20110831
  Serious: Yes (Life-Threatening)
  Sender: FDA-Public Use
  Company Number: 301164

PATIENT
  Age: 55 Year
  Sex: Male
  Weight: 85 kg

DRUGS (4)
  1. SODIUM CHLORIDE [Concomitant]
  2. ZOFRAN [Concomitant]
  3. PRILOSEC (OMEPRAZOLE) [Concomitant]
  4. ACTIVASE [Suspect]
     Indication: MESENTERIC VEIN THROMBOSIS
     Dosage: 25 MG, INTRAVENOUS
     Route: 042
     Dates: start: 20100424, end: 20100425

REACTIONS (1)
  - DRUG INEFFECTIVE [None]
